FAERS Safety Report 8318032-X (Version None)
Quarter: 2012Q2

REPORT INFORMATION
  Report Type: 
  Country: None (occurrence: None)
  Receive Date: 20120427
  Receipt Date: 20120419
  Transmission Date: 20120825
  Serious: Yes (Hospitalization)
  Sender: FDA-Public Use
  Company Number: CH-ROCHE-1043011

PATIENT
  Age: 66 Year
  Sex: Male

DRUGS (6)
  1. CISPLATIN [Suspect]
     Indication: LUNG ADENOCARCINOMA METASTATIC
     Dosage: LAST DOSE: 13/FEB/2012
     Route: 042
     Dates: start: 20120102
  2. CANDESARTAN CILEXETIL [Concomitant]
     Route: 048
  3. PEMETREXED DISODIUM [Suspect]
     Indication: LUNG ADENOCARCINOMA METASTATIC
     Dosage: LAST DOSE: 13/FEB/2012
     Route: 042
     Dates: start: 20120102
  4. PRAVASTATIN [Concomitant]
     Route: 048
  5. AVASTIN [Suspect]
     Indication: LUNG ADENOCARCINOMA METASTATIC
     Dosage: LAST DOSE: 13/FEB/2012
     Route: 042
     Dates: start: 20120102
  6. AMLODIPINE [Concomitant]
     Route: 048

REACTIONS (3)
  - DEHYDRATION [None]
  - BLOOD CREATININE INCREASED [None]
  - FATIGUE [None]
